FAERS Safety Report 13463585 (Version 2)
Quarter: 2017Q2

REPORT INFORMATION
  Report Type: Report from Study
  Country: US (occurrence: US)
  Receive Date: 20170420
  Receipt Date: 20170515
  Transmission Date: 20170830
  Serious: Yes (Death, Hospitalization)
  Sender: FDA-Public Use
  Company Number: US-ACTELION-A-US2017-149481

PATIENT
  Age: 57 Year
  Sex: Female
  Weight: 68.27 kg

DRUGS (3)
  1. VELETRI [Suspect]
     Active Substance: EPOPROSTENOL
     Dosage: 14 NG/KG, PER MIN
     Route: 042
     Dates: start: 201701
  2. OPSUMIT [Suspect]
     Active Substance: MACITENTAN
     Indication: PULMONARY HYPERTENSION
     Dosage: UNK
     Route: 048
  3. VELETRI [Suspect]
     Active Substance: EPOPROSTENOL
     Indication: PULMONARY HYPERTENSION
     Dosage: 22 NG/KG, PER MIN
     Route: 042

REACTIONS (13)
  - Respiratory failure [Fatal]
  - Dehydration [Unknown]
  - Headache [Unknown]
  - Vomiting [Unknown]
  - Fluid retention [Unknown]
  - Diarrhoea [Unknown]
  - Nausea [Unknown]
  - General physical health deterioration [Unknown]
  - Skin irritation [Unknown]
  - Dyspnoea [Fatal]
  - Acute kidney injury [Unknown]
  - Pain in jaw [Unknown]
  - Fluid overload [Unknown]

NARRATIVE: CASE EVENT DATE: 201704
